FAERS Safety Report 23019500 (Version 1)
Quarter: 2023Q4

REPORT INFORMATION
  Report Type: Report from Study
  Country: CA (occurrence: CA)
  Receive Date: 20231003
  Receipt Date: 20231003
  Transmission Date: 20240110
  Serious: Yes (Other)
  Sender: FDA-Public Use
  Company Number: CA-JNJFOC-20230962713

PATIENT
  Age: 17 Year
  Sex: Female
  Weight: 80 kg

DRUGS (1)
  1. REMICADE [Suspect]
     Active Substance: INFLIXIMAB
     Indication: Colitis ulcerative
     Dosage: ON 26-SEP-2023, THE PATIENT RECEIVED 22ND INFLIXIMAB, RECOMBINANT INFUSION AT DOSE OF 800 MG AND PAR
     Route: 042
     Dates: start: 20210726

REACTIONS (6)
  - Haematochezia [Unknown]
  - COVID-19 [Recovered/Resolved]
  - Muscle spasms [Unknown]
  - General physical health deterioration [Unknown]
  - Diarrhoea [Unknown]
  - Nausea [Unknown]

NARRATIVE: CASE EVENT DATE: 20230901
